FAERS Safety Report 25006909 (Version 1)
Quarter: 2025Q1

REPORT INFORMATION
  Report Type: Report from Study
  Country: BE (occurrence: BE)
  Receive Date: 20250225
  Receipt Date: 20250225
  Transmission Date: 20250408
  Serious: Yes (Other)
  Sender: ABBVIE
  Company Number: BE-JNJFOC-20180406583

PATIENT
  Age: 81 Year
  Sex: Male

DRUGS (3)
  1. IMBRUVICA [Suspect]
     Active Substance: IBRUTINIB
     Indication: Chronic lymphocytic leukaemia
     Route: 048
     Dates: start: 20170524, end: 20180402
  2. IMBRUVICA [Suspect]
     Active Substance: IBRUTINIB
     Indication: Chronic lymphocytic leukaemia
     Route: 048
     Dates: start: 20180403, end: 20180903
  3. IMBRUVICA [Suspect]
     Active Substance: IBRUTINIB
     Indication: Chronic lymphocytic leukaemia
     Route: 048
     Dates: start: 20180904, end: 20190312

REACTIONS (13)
  - Hepatotoxicity [Not Recovered/Not Resolved]
  - Angina pectoris [Recovered/Resolved]
  - Epistaxis [Recovered/Resolved]
  - Petechiae [Recovered/Resolved]
  - Impaired healing [Recovered/Resolved]
  - Abdominal discomfort [Recovered/Resolved]
  - Ecchymosis [Recovered/Resolved]
  - Abdominal pain upper [Recovered/Resolved]
  - Conjunctivitis [Recovered/Resolved]
  - Nasal discomfort [Recovered/Resolved]
  - Rhinitis [Recovered/Resolved]
  - Fatigue [Recovered/Resolved]
  - Decreased appetite [Recovered/Resolved]

NARRATIVE: CASE EVENT DATE: 20170607
